FAERS Safety Report 24691299 (Version 1)
Quarter: 2024Q4

REPORT INFORMATION
  Report Type: Spontaneous
  Country: US (occurrence: US)
  Receive Date: 20241203
  Receipt Date: 20241203
  Transmission Date: 20250115
  Serious: Yes (Other)
  Sender: MALLINCKRODT
  Company Number: US-MALLINCKRODT-MNK202407099

PATIENT
  Age: 30 Year
  Sex: Female

DRUGS (8)
  1. CORTICOTROPIN [Suspect]
     Active Substance: CORTICOTROPIN
     Indication: Glomerulonephritis membranoproliferative
     Dosage: UNKNOWN
  2. CORTICOTROPIN [Suspect]
     Active Substance: CORTICOTROPIN
  3. PREDNISONE [Concomitant]
     Active Substance: PREDNISONE
  4. PREDNISONE [Concomitant]
     Active Substance: PREDNISONE
     Dosage: UNKNOWN (TAPER DOSE)
  5. PREDNISONE [Concomitant]
     Active Substance: PREDNISONE
  6. PREDNISONE [Concomitant]
     Active Substance: PREDNISONE
  7. CYCLOPHOSPHAMIDE [Concomitant]
     Active Substance: CYCLOPHOSPHAMIDE
     Dosage: UNKNOWN
  8. RITUXIMAB [Concomitant]
     Active Substance: RITUXIMAB
     Dosage: UNKNOWN

REACTIONS (4)
  - Glomerulonephritis membranoproliferative [Unknown]
  - Condition aggravated [Unknown]
  - Suicidal ideation [Unknown]
  - Depression [Unknown]
